FAERS Safety Report 20171316 (Version 1)
Quarter: 2021Q4

REPORT INFORMATION
  Report Type: Other
  Country: PL (occurrence: None)
  Receive Date: 20211210
  Receipt Date: 20211210
  Transmission Date: 20220303
  Serious: Yes (Death, Hospitalization, Other)
  Sender: FDA-Public Use
  Company Number: PL-Invatech-000200

PATIENT
  Sex: Female

DRUGS (1)
  1. VALPROIC ACID [Suspect]
     Active Substance: VALPROIC ACID
     Indication: Myoclonic epilepsy
     Dosage: 350 MG-0-350 MG

REACTIONS (5)
  - Pancreatic injury [Unknown]
  - Multiple organ dysfunction syndrome [Fatal]
  - Liver injury [Unknown]
  - Contraindicated product administered [Unknown]
  - Condition aggravated [Unknown]
